FAERS Safety Report 8263509-9 (Version None)
Quarter: 2012Q2

REPORT INFORMATION
  Report Type: 
  Country: None (occurrence: None)
  Receive Date: 20120405
  Receipt Date: 20120402
  Transmission Date: 20120825
  Serious: Yes (Other)
  Sender: FDA-Public Use
  Company Number: GR-PFIZER INC-2012082929

PATIENT

DRUGS (1)
  1. PHENYTOIN SODIUM [Suspect]

REACTIONS (1)
  - GASTROSTOMY [None]
